FAERS Safety Report 8963962 (Version 2)
Quarter: 2013Q2

REPORT INFORMATION
  Report Type: Spontaneous
  Country: US (occurrence: US)
  Receive Date: 20121214
  Receipt Date: 20130430
  Transmission Date: 20140414
  Serious: Yes (Hospitalization)
  Sender: FDA-Public Use
  Company Number: US-BAYER-2012-129915

PATIENT
  Age: 37 Year
  Sex: Female

DRUGS (13)
  1. OCELLA [Suspect]
     Indication: OVULATION PAIN
  2. YAZ [Suspect]
     Indication: OVULATION PAIN
  3. YASMIN [Suspect]
  4. VICODIN [Concomitant]
     Indication: PAIN
     Dosage: 5/500 MG HALF TABLET EVERY 4 HOURS AS NEEDED; 360 DISPENSED FOR 60 DAYS^ SUPPLY
  5. NULEV [Concomitant]
     Indication: ABDOMINAL DISCOMFORT
     Dosage: 0.25 MG,EVERY 4 HOURS PRN
     Route: 048
  6. MELATONIN [Concomitant]
     Indication: INSOMNIA
     Dosage: DAILY AS NEEDED
  7. FISH OIL [Concomitant]
     Dosage: 1000 MG, DAILY
  8. OPHTHALMOLOGICALS [Concomitant]
     Dosage: 1 DROP LEFT EYE TWICE DAILY AS NEEDED
     Route: 047
  9. MULTIVITAMIN [Concomitant]
     Dosage: DAILY
  10. COLECALCIFEROL [Concomitant]
     Dosage: DAILY
  11. ZOCOR [Concomitant]
     Dosage: 20 MG, DAILY
  12. TRAZODONE [Concomitant]
     Dosage: 25 MG, UNK
  13. HYOSCYAMINE [Concomitant]

REACTIONS (1)
  - Cerebral artery embolism [None]
